FAERS Safety Report 6173912-9 (Version None)
Quarter: 2009Q2

REPORT INFORMATION
  Report Type: 
  Country: None (occurrence: None)
  Receive Date: 20090430
  Receipt Date: 20090428
  Transmission Date: 20091009
  Serious: Yes (Hospitalization)
  Sender: FDA-Public Use
  Company Number: BE-BRISTOL-MYERS SQUIBB COMPANY-14514814

PATIENT
  Age: 68 Year
  Sex: Male
  Weight: 80 kg

DRUGS (6)
  1. CETUXIMAB [Suspect]
     Indication: HEAD AND NECK CANCER
     Dosage: RECENT INFUSION: 24-DEC-2008
     Route: 042
     Dates: start: 20080828
  2. CISPLATIN [Suspect]
     Indication: HEAD AND NECK CANCER
     Route: 042
     Dates: start: 20080828, end: 20081030
  3. CARBOPLATIN [Suspect]
     Indication: HEAD AND NECK CANCER
     Dosage: RECENT INFUSION: 24-DEC-2008
     Route: 042
     Dates: start: 20081127
  4. DOCETAXEL [Suspect]
     Indication: HEAD AND NECK CANCER
     Route: 042
     Dates: start: 20080828, end: 20081030
  5. FLUOROURACIL [Suspect]
     Indication: HEAD AND NECK CANCER
     Route: 042
     Dates: start: 20080828, end: 20081103
  6. RADIOTHERAPY [Suspect]
     Indication: HEAD AND NECK CANCER
     Dates: start: 20081127

REACTIONS (3)
  - ANOREXIA [None]
  - DYSPHAGIA [None]
  - WEIGHT DECREASED [None]
